FAERS Safety Report 5161667-6 (Version None)
Quarter: 2006Q4

REPORT INFORMATION
  Report Type: 
  Country: None (occurrence: None)
  Receive Date: 20061130
  Receipt Date: 20060419
  Transmission Date: 20070319
  Serious: No
  Sender: FDA-Public Use
  Company Number: US-BRISTOL-MYERS SQUIBB COMPANY-13351689

PATIENT
  Age: 68 Year
  Sex: Female
  Weight: 70 kg

DRUGS (3)
  1. GLUCOPHAGE [Suspect]
  2. GLUCOPHAGE XR [Suspect]
  3. ATIVAN [Concomitant]

REACTIONS (3)
  - ABDOMINAL PAIN [None]
  - BLOOD GLUCOSE INCREASED [None]
  - DIARRHOEA [None]
